FAERS Safety Report 12015775 (Version 1)
Quarter: 2016Q1

REPORT INFORMATION
  Report Type: Spontaneous
  Country: US (occurrence: US)
  Receive Date: 20160205
  Receipt Date: 20160205
  Transmission Date: 20160526
  Serious: No
  Sender: FDA-Public Use
  Company Number: US-AMGEN-USASP2015091539

PATIENT
  Age: 56 Year
  Sex: Male
  Weight: 98.87 kg

DRUGS (6)
  1. EMEND [Concomitant]
     Active Substance: APREPITANT
     Dosage: 150 G, Q21D
     Route: 042
  2. CARBOPLATIN. [Concomitant]
     Active Substance: CARBOPLATIN
     Dosage: 70 G, Q21D
     Route: 042
  3. ALOXI [Concomitant]
     Active Substance: PALONOSETRON HYDROCHLORIDE
     Dosage: 625 G, Q21D
     Route: 042
  4. DECADRON [Concomitant]
     Active Substance: DEXAMETHASONE
     Dosage: 10 G, Q21D
     Route: 042
  5. TAXOTERE [Concomitant]
     Active Substance: DOCETAXEL
     Indication: LUNG NEOPLASM MALIGNANT
     Dosage: 170 G, Q21D
     Route: 042
     Dates: start: 20150709
  6. NEULASTA [Suspect]
     Active Substance: PEGFILGRASTIM
     Indication: PRODUCT USED FOR UNKNOWN INDICATION
     Dosage: 6 MG, X 1
     Route: 065

REACTIONS (6)
  - Device malfunction [Unknown]
  - Device issue [Recovered/Resolved]
  - Device adhesion issue [Unknown]
  - Device leakage [Unknown]
  - Underdose [Unknown]
  - Drug dose omission [Recovered/Resolved]

NARRATIVE: CASE EVENT DATE: 2015
